FAERS Safety Report 10056784 (Version 1)
Quarter: 2014Q2

REPORT INFORMATION
  Report Type: Spontaneous
  Country: US (occurrence: US)
  Receive Date: 20140403
  Receipt Date: 20140403
  Transmission Date: 20141212
  Serious: Yes (Hospitalization)
  Sender: FDA-Public Use
  Company Number: PHHY2014US039809

PATIENT
  Age: 18 Year
  Sex: Male

DRUGS (5)
  1. CUBICIN [Suspect]
     Indication: MUSCULOSKELETAL PAIN
     Route: 042
  2. CUBICIN [Suspect]
     Indication: BACTERIAL INFECTION
  3. VANCOMYCIN [Suspect]
     Indication: PERIRECTAL ABSCESS
     Route: 042
  4. CIPROFLOXACIN [Suspect]
     Indication: BACTERIAL INFECTION
     Route: 042
  5. FLAGYL [Concomitant]

REACTIONS (2)
  - Perirectal abscess [Unknown]
  - Necrotising fasciitis [Unknown]
